FAERS Safety Report 8806245 (Version 1)
Quarter: 2012Q4

REPORT INFORMATION
  Report Type: Spontaneous
  Country: None (occurrence: None)
  Receive Date: 20120919
  Receipt Date: 20120919
  Transmission Date: 20130627
  Serious: Yes (Other)
  Sender: FDA-Public Use
  Company Number: 2012MA010985

PATIENT
  Sex: Male
  Weight: 3.05 kg

DRUGS (1)
  1. FEVERALL [Suspect]
     Indication: DRUG EXPOSURE IN UTERO
     Route: 064

REACTIONS (4)
  - Maternal drugs affecting foetus [None]
  - Neonatal asphyxia [None]
  - Apgar score low [None]
  - Sedation [None]
